FAERS Safety Report 7951724-0 (Version None)
Quarter: 2011Q4

REPORT INFORMATION
  Report Type: 
  Country: None (occurrence: None)
  Receive Date: 20111201
  Receipt Date: 20111118
  Transmission Date: 20120403
  Serious: Yes (Other)
  Sender: FDA-Public Use
  Company Number: US-SANOFI-AVENTIS-2011SA076694

PATIENT

DRUGS (1)
  1. ELOXATIN [Suspect]
     Route: 041

REACTIONS (1)
  - ADVERSE DRUG REACTION [None]
